FAERS Safety Report 8256857-X (Version None)
Quarter: 2012Q2

REPORT INFORMATION
  Report Type: 
  Country: None (occurrence: None)
  Receive Date: 20120403
  Receipt Date: 20120329
  Transmission Date: 20120825
  Serious: Yes (Other)
  Sender: FDA-Public Use
  Company Number: US-PFIZER INC-2012041250

PATIENT
  Sex: Female
  Weight: 79.4 kg

DRUGS (4)
  1. ZOLOFT [Suspect]
     Indication: DEPRESSION
     Dosage: 150MG, DAILY
     Route: 048
     Dates: start: 20070101
  2. ZOLOFT [Suspect]
     Indication: ANXIETY
  3. NAPROXEN [Concomitant]
     Indication: PAIN
     Dosage: 500 MG, 1X/DAY
  4. NAPROXEN [Concomitant]
     Indication: INFLAMMATION

REACTIONS (5)
  - FIBROMYALGIA [None]
  - DRUG INEFFECTIVE [None]
  - INTERVERTEBRAL DISC PROTRUSION [None]
  - DEPRESSION [None]
  - VITAMIN D DECREASED [None]
